FAERS Safety Report 5493131-9 (Version None)
Quarter: 2007Q4

REPORT INFORMATION
  Report Type: 
  Country: None (occurrence: None)
  Receive Date: 20071023
  Receipt Date: 20071016
  Transmission Date: 20080405
  Serious: Yes (Hospitalization)
  Sender: FDA-Public Use
  Company Number: FR-SANOFI-SYNTHELABO-A02200702680

PATIENT
  Sex: Male

DRUGS (15)
  1. FORLAX [Suspect]
     Dosage: UNK
     Route: 048
  2. LEXOMIL [Suspect]
     Route: 048
  3. PAROXETINE [Suspect]
     Indication: DRUG USE FOR UNKNOWN INDICATION
     Route: 048
  4. ZOFRAN [Suspect]
     Indication: DRUG USE FOR UNKNOWN INDICATION
     Route: 048
  5. LEDERFOLINE [Suspect]
     Indication: COLON CANCER
     Route: 042
     Dates: start: 20070701, end: 20070701
  6. LEDERFOLINE [Suspect]
     Route: 042
     Dates: start: 20070725, end: 20070725
  7. LEDERFOLINE [Suspect]
     Route: 042
     Dates: start: 20070807, end: 20070807
  8. FLUOROURACIL [Suspect]
     Indication: COLON CANCER
     Route: 042
     Dates: start: 20070701, end: 20070701
  9. FLUOROURACIL [Suspect]
     Route: 042
     Dates: start: 20070725, end: 20070725
  10. FLUOROURACIL [Suspect]
     Route: 042
     Dates: start: 20070807, end: 20070807
  11. ELOXATIN [Suspect]
     Indication: COLON CANCER
     Route: 042
     Dates: start: 20070701, end: 20070701
  12. ELOXATIN [Suspect]
     Route: 042
     Dates: start: 20070725, end: 20070725
  13. COSOPT [Concomitant]
     Indication: DRUG USE FOR UNKNOWN INDICATION
     Dosage: UNK
     Route: 047
  14. XALATAN [Concomitant]
     Indication: DRUG USE FOR UNKNOWN INDICATION
     Dosage: UNK
     Route: 047
  15. DURAGESIC-100 [Suspect]
     Indication: DRUG USE FOR UNKNOWN INDICATION
     Route: 062

REACTIONS (3)
  - CEREBELLAR SYNDROME [None]
  - CHEST PAIN [None]
  - GAIT DISTURBANCE [None]
